FAERS Safety Report 5699456-6 (Version None)
Quarter: 2008Q2

REPORT INFORMATION
  Report Type: 
  Country: None (occurrence: None)
  Receive Date: 20080407
  Receipt Date: 20080407
  Transmission Date: 20081010
  Serious: Yes (Death)
  Sender: FDA-Public Use
  Company Number: None

PATIENT
  Sex: Female
  Weight: 65.7716 kg

DRUGS (11)
  1. ERLOTINIB - GENETECH [Suspect]
     Indication: METASTATIC RENAL CELL CARCINOMA
     Dosage: 150MG, QD, PO
     Route: 048
     Dates: start: 20061214, end: 20070103
  2. RAPAMUNE [Suspect]
     Indication: METASTATIC RENAL CELL CARCINOMA
     Dosage: 2 MG, QD, PO
     Route: 048
     Dates: start: 20061226, end: 20070103
  3. PREVACID [Concomitant]
  4. DECADRON [Concomitant]
  5. NORVASC [Concomitant]
  6. LOPRESSOR [Concomitant]
  7. DILAUDID [Concomitant]
  8. COUMADIN [Concomitant]
  9. REMERON [Concomitant]
  10. FENTANYL [Concomitant]
  11. ZOMETA [Concomitant]

REACTIONS (3)
  - DISEASE PROGRESSION [None]
  - MUSCULAR WEAKNESS [None]
  - MYOPATHY STEROID [None]
